FAERS Safety Report 4405102-1 (Version None)
Quarter: 2004Q3

REPORT INFORMATION
  Report Type: 
  Country: None (occurrence: None)
  Receive Date: 20040716
  Receipt Date: 20040702
  Transmission Date: 20050211
  Serious: Yes (Hospitalization)
  Sender: FDA-Public Use
  Company Number: 173929

PATIENT
  Age: 45 Year
  Sex: Female
  Weight: 77.1115 kg

DRUGS (10)
  1. AVONEX [Suspect]
     Indication: MULTIPLE SCLEROSIS
     Dosage: 30 MCG QW IM
     Route: 030
     Dates: start: 19960801, end: 20000201
  2. AVONEX [Suspect]
     Indication: MULTIPLE SCLEROSIS
     Dosage: 30 MCG QW IM
     Route: 030
     Dates: start: 20010101
  3. BACLOFEN [Concomitant]
  4. SKELAXIN [Concomitant]
  5. XANAX [Concomitant]
  6. VERAPAMIL [Concomitant]
  7. LIPITOR [Concomitant]
  8. PROZAC [Concomitant]
  9. PAXIL [Concomitant]
  10. LANOXIN [Concomitant]

REACTIONS (17)
  - BALANCE DISORDER [None]
  - BORDERLINE OVARIAN TUMOUR [None]
  - CARBOHYDRATE ANTIGEN 125 INCREASED [None]
  - COGNITIVE DISORDER [None]
  - CYSTITIS [None]
  - DIVERTICULITIS [None]
  - FALL [None]
  - FUNGAL SKIN INFECTION [None]
  - GASTROINTESTINAL DISORDER [None]
  - LARYNGOSPASM [None]
  - MIGRAINE [None]
  - MULTIPLE SCLEROSIS [None]
  - ORAL FUNGAL INFECTION [None]
  - PAIN IN EXTREMITY [None]
  - URINARY RETENTION [None]
  - VAGINAL MYCOSIS [None]
  - VAGINITIS GARDNERELLA [None]
